FAERS Safety Report 19198226 (Version 2)
Quarter: 2021Q2

REPORT INFORMATION
  Report Type: Spontaneous
  Country: US (occurrence: US)
  Receive Date: 20210430
  Receipt Date: 20210623
  Transmission Date: 20210717
  Serious: Yes (Life-Threatening, Hospitalization)
  Sender: FDA-Public Use
  Company Number: US-TEVA-2021-US-1902755

PATIENT
  Age: 40 Year
  Sex: Male

DRUGS (5)
  1. LACTULOSE. [Concomitant]
     Active Substance: LACTULOSE
     Indication: DRUG THERAPY
     Route: 048
  2. SENNA [Concomitant]
     Active Substance: SENNA LEAF\SENNOSIDES\SENNOSIDES A AND B
     Indication: DRUG THERAPY
     Dosage: 20 MILLIGRAM DAILY;
     Route: 065
  3. POLYETHYLENE?GLYCOL [Concomitant]
     Indication: DRUG THERAPY
     Dosage: 204 GRAM DAILY;
     Route: 065
  4. LOPERAMIDE [Suspect]
     Active Substance: LOPERAMIDE
     Indication: DRUG WITHDRAWAL SYNDROME
     Dosage: 2 MILLIGRAM DAILY; (100 TABLETS) 5YEARS
     Route: 048
  5. BISACODYL. [Concomitant]
     Active Substance: BISACODYL
     Indication: DRUG THERAPY
     Dosage: 10 MILLIGRAM DAILY;
     Route: 054

REACTIONS (7)
  - Pulseless electrical activity [Recovering/Resolving]
  - Torsade de pointes [Recovered/Resolved]
  - Cardiac arrest [Recovered/Resolved]
  - Toxicity to various agents [Unknown]
  - Overdose [Unknown]
  - Sinus tachycardia [Unknown]
  - Mental status changes [Unknown]
